FAERS Safety Report 8539308-7 (Version None)
Quarter: 2012Q3

REPORT INFORMATION
  Report Type: 
  Country: None (occurrence: None)
  Receive Date: 20120726
  Receipt Date: 20110727
  Transmission Date: 20120928
  Serious: No
  Sender: FDA-Public Use
  Company Number: US-ASTRAZENECA-2011SE44984

PATIENT
  Age: 70 Year
  Sex: Female
  Weight: 74.8 kg

DRUGS (5)
  1. GLUCOPHAGE [Concomitant]
  2. LEVOTHYROXINE SODIUM [Concomitant]
     Indication: THYROID DISORDER
  3. SEROQUEL XR [Suspect]
     Indication: DEPRESSION
     Route: 048
     Dates: start: 20110501
  4. LEXAPRO [Concomitant]
  5. HUMULIN 70/30 [Concomitant]

REACTIONS (5)
  - WEIGHT INCREASED [None]
  - ARTHRALGIA [None]
  - MUSCULOSKELETAL PAIN [None]
  - LOCAL SWELLING [None]
  - OEDEMA PERIPHERAL [None]
